FAERS Safety Report 10218516 (Version 2)
Quarter: 2014Q2

REPORT INFORMATION
  Report Type: Spontaneous
  Country: IT (occurrence: IT)
  Receive Date: 20140605
  Receipt Date: 20140611
  Transmission Date: 20141212
  Serious: Yes (Hospitalization)
  Sender: FDA-Public Use
  Company Number: IT-TEVA-484165ISR

PATIENT
  Age: 77 Year
  Sex: Female

DRUGS (6)
  1. METFORMIN [Suspect]
     Indication: DIABETES MELLITUS
     Dosage: 3000 MILLIGRAM DAILY; 3000 MG DAILY
     Route: 048
     Dates: start: 20110530, end: 20140519
  2. DRAMION - 30 MG COMPRESSE A RILASCIO MODIFICATO - IST. FARM. BIOL. [Suspect]
     Indication: DIABETES MELLITUS
     Dosage: 30 MILLIGRAM DAILY; 30 MG DAILY, MODIFIED-RELEASE TABLET
     Route: 048
     Dates: start: 20110530, end: 20140519
  3. LIPONORM - 20 MG COMPRESSE RIVESTITE CON FILM [Concomitant]
     Indication: PRODUCT USED FOR UNKNOWN INDICATION
     Dates: start: 20110530, end: 20140519
  4. TENORMIN - 100 MG COMPRESSE [Concomitant]
     Indication: PRODUCT USED FOR UNKNOWN INDICATION
     Dates: start: 20110530, end: 20140519
  5. COMBISARTAN - 80 MG/12.5 MG COMPRESSE RIVESTITE CON FILM [Concomitant]
     Indication: PRODUCT USED FOR UNKNOWN INDICATION
     Dates: start: 20110530, end: 20140519
  6. CYMBALTA [Concomitant]
     Indication: PRODUCT USED FOR UNKNOWN INDICATION
     Dosage: GASTRO-RESISTANT CAPSULE, HARD
     Dates: start: 20110530, end: 20140519

REACTIONS (2)
  - Hypoglycaemia [Recovered/Resolved]
  - Blood creatinine increased [Unknown]
